FAERS Safety Report 6757642-8 (Version None)
Quarter: 2010Q2

REPORT INFORMATION
  Report Type: 
  Country: None (occurrence: None)
  Receive Date: 20100607
  Receipt Date: 20100602
  Transmission Date: 20101027
  Serious: Yes (Other)
  Sender: FDA-Public Use
  Company Number: JP-JNJFOC-20100510485

PATIENT
  Age: 70 Year
  Sex: Male

DRUGS (1)
  1. DUROTEP MT [Suspect]
     Indication: PANCREATIC CARCINOMA
     Route: 062

REACTIONS (2)
  - DELIRIUM [None]
  - RESTLESSNESS [None]
